FAERS Safety Report 16584438 (Version 4)
Quarter: 2019Q4

REPORT INFORMATION
  Report Type: Spontaneous
  Country: US (occurrence: US)
  Receive Date: 20190717
  Receipt Date: 20191223
  Transmission Date: 20200122
  Serious: Yes (Death, Other)
  Sender: FDA-Public Use
  Company Number: US-AUROBINDO-AUR-APL-2019-040389

PATIENT
  Age: 91 Year
  Sex: Male
  Weight: 65.77 kg

DRUGS (1)
  1. CARVEDILOL  6.25 MG [Suspect]
     Active Substance: CARVEDILOL
     Indication: CARDIAC FAILURE CONGESTIVE
     Dosage: 1 DOSAGE FORM, MORNING AND NIGHT
     Route: 065
     Dates: start: 20181027

REACTIONS (2)
  - Drug ineffective [Unknown]
  - Death [Fatal]
